FAERS Safety Report 8657219 (Version 2)
Quarter: 2012Q4

REPORT INFORMATION
  Report Type: 
  Country: DE (occurrence: DE)
  Receive Date: 20120710
  Receipt Date: 20121026
  Transmission Date: 20130627
  Serious: Yes (Other)
  Sender: FDA-Public Use
  Company Number: DE-AMGEN-DEUSP2012041055

PATIENT
  Age: 74 Year
  Sex: Male
  Weight: 89 kg

DRUGS (3)
  1. ENBREL [Suspect]
     Indication: RHEUMATOID ARTHRITIS
     Dosage: 25 mg, 2x/week
     Route: 058
     Dates: start: 20111118, end: 20120520
  2. PREDNISOLONE [Concomitant]
     Dosage: UNK
  3. ARCOXIA [Concomitant]
     Dosage: UNK

REACTIONS (8)
  - Intraocular pressure increased [Recovered/Resolved]
  - Eye inflammation [Recovered/Resolved]
  - Lacrimation increased [Recovered/Resolved]
  - Conjunctival oedema [Recovering/Resolving]
  - Eyelid oedema [Recovering/Resolving]
  - Erythema of eyelid [Recovering/Resolving]
  - Eyelid pain [Recovering/Resolving]
  - Drug effect incomplete [Unknown]
